FAERS Safety Report 5186353-8 (Version None)
Quarter: 2006Q4

REPORT INFORMATION
  Report Type: 
  Country: None (occurrence: None)
  Receive Date: 20061220
  Receipt Date: 20061214
  Transmission Date: 20070319
  Serious: Yes (Other)
  Sender: FDA-Public Use
  Company Number: US-ELI_LILLY_AND_COMPANY-US200612003078

PATIENT

DRUGS (3)
  1. HUMULIN R [Suspect]
     Dosage: UNK, UNK
     Route: 064
     Dates: start: 20050101, end: 20060503
  2. ALDOMET [Concomitant]
     Route: 064
  3. FERROUS SULFATE TAB [Concomitant]
     Route: 064

REACTIONS (3)
  - APGAR SCORE LOW [None]
  - DRUG EXPOSURE DURING PREGNANCY [None]
  - PREMATURE BABY [None]
